FAERS Safety Report 5474400-5 (Version None)
Quarter: 2007Q3

REPORT INFORMATION
  Report Type: 
  Country: None (occurrence: None)
  Receive Date: 20070904
  Receipt Date: 20070205
  Transmission Date: 20080115
  Serious: Yes (Other)
  Sender: FDA-Public Use
  Company Number: 152632USA

PATIENT
  Age: 50 Year
  Sex: Female

DRUGS (1)
  1. LISINOPRIL AND HYDROCHLOROTHIAZIDE [Suspect]

REACTIONS (5)
  - EYE SWELLING [None]
  - HYPERTENSION [None]
  - HYPOAESTHESIA FACIAL [None]
  - LOCAL SWELLING [None]
  - PHARYNGEAL OEDEMA [None]
